FAERS Safety Report 7269980-3 (Version None)
Quarter: 2011Q1

REPORT INFORMATION
  Report Type: 
  Country: None (occurrence: None)
  Receive Date: 20110202
  Receipt Date: 20110124
  Transmission Date: 20110831
  Serious: Yes (Death)
  Sender: FDA-Public Use
  Company Number: US-ROCHE-748810

PATIENT
  Sex: Female

DRUGS (3)
  1. PACLITAXEL [Concomitant]
  2. GEMCITABINE [Concomitant]
  3. AVASTIN [Suspect]
     Dosage: DOSE, ROUTE, FORM AND FREQUENCY NOT PROVIDED.
     Route: 065

REACTIONS (1)
  - DISEASE PROGRESSION [None]
